FAERS Safety Report 11182802 (Version 3)
Quarter: 2015Q3

REPORT INFORMATION
  Report Type: Spontaneous
  Country: US (occurrence: US)
  Receive Date: 20150611
  Receipt Date: 20150806
  Transmission Date: 20151125
  Serious: Yes (Death, Hospitalization, Other)
  Sender: FDA-Public Use
  Company Number: US-009507513-1506USA006145

PATIENT
  Sex: Male
  Weight: 63.95 kg

DRUGS (1)
  1. JANUVIA [Suspect]
     Active Substance: SITAGLIPTIN PHOSPHATE
     Indication: TYPE 2 DIABETES MELLITUS
     Dosage: 100 MG, QD
     Route: 048
     Dates: start: 20130322, end: 20130603

REACTIONS (18)
  - Pleural fibrosis [Unknown]
  - Inguinal hernia [Unknown]
  - Leukocytosis [Unknown]
  - Haematuria [Unknown]
  - Dehydration [Recovering/Resolving]
  - Abdominal lymphadenopathy [Unknown]
  - Pancreatic carcinoma metastatic [Unknown]
  - Metastases to lymph nodes [Unknown]
  - Hyperglycaemia [Unknown]
  - Arteriosclerosis [Unknown]
  - Renal cyst [Unknown]
  - Death [Fatal]
  - Metastases to liver [Unknown]
  - Cachexia [Unknown]
  - Spinal osteoarthritis [Unknown]
  - Pneumonia [Recovering/Resolving]
  - Diverticulum intestinal [Unknown]
  - Anaemia [Unknown]

NARRATIVE: CASE EVENT DATE: 20130529
